FAERS Safety Report 7368473-2 (Version None)
Quarter: 2011Q1

REPORT INFORMATION
  Report Type: 
  Country: None (occurrence: None)
  Receive Date: 20110309
  Receipt Date: 20110301
  Transmission Date: 20110831
  Serious: Yes (Other)
  Sender: FDA-Public Use
  Company Number: DSA_44825_2011

PATIENT
  Sex: Female

DRUGS (4)
  1. BUPROPION HYDROCHLORIDE [Suspect]
     Indication: BORDERLINE PERSONALITY DISORDER
     Dosage: (400 MG QD ORAL), (400 MG QD ORAL)
     Route: 048
     Dates: start: 20101101, end: 20101201
  2. BUPROPION HYDROCHLORIDE [Suspect]
     Indication: DEPRESSION
     Dosage: (400 MG QD ORAL), (400 MG QD ORAL)
     Route: 048
     Dates: start: 20101101, end: 20101201
  3. BUPROPION HYDROCHLORIDE [Suspect]
     Indication: BORDERLINE PERSONALITY DISORDER
     Dosage: (400 MG QD ORAL), (400 MG QD ORAL)
     Route: 048
     Dates: start: 20080101, end: 20100101
  4. BUPROPION HYDROCHLORIDE [Suspect]
     Indication: DEPRESSION
     Dosage: (400 MG QD ORAL), (400 MG QD ORAL)
     Route: 048
     Dates: start: 20080101, end: 20100101

REACTIONS (8)
  - HYPERSENSITIVITY [None]
  - SIMILAR REACTION ON PREVIOUS EXPOSURE TO DRUG [None]
  - RASH [None]
  - SWOLLEN TONGUE [None]
  - MYALGIA [None]
  - ARTHRALGIA [None]
  - TENDON PAIN [None]
  - EYELID OEDEMA [None]
